FAERS Safety Report 8961769 (Version 2)
Quarter: 2012Q4

REPORT INFORMATION
  Report Type: 
  Country: US (occurrence: US)
  Receive Date: 20121212
  Receipt Date: 20121221
  Transmission Date: 20130627
  Serious: No
  Sender: FDA-Public Use
  Company Number: US-PFIZER INC-2012307351

PATIENT
  Age: 50 Year
  Sex: Female
  Weight: 78 kg

DRUGS (3)
  1. CELEBREX [Suspect]
     Indication: PAIN
     Dosage: 200 mg, UNK
     Route: 048
     Dates: start: 2000
  2. KLONOPIN [Concomitant]
     Indication: CHRONIC ANXIETY
     Dosage: 1 mg, 3x/day
  3. METHADONE [Concomitant]
     Dosage: UNK, 3x/day

REACTIONS (5)
  - Muscle spasms [Unknown]
  - Blood urea increased [Unknown]
  - Menopausal symptoms [Unknown]
  - Insomnia [Unknown]
  - Impaired healing [Unknown]
